FAERS Safety Report 8844549 (Version 2)
Quarter: 2012Q4

REPORT INFORMATION
  Report Type: 
  Country: US (occurrence: US)
  Receive Date: 20121017
  Receipt Date: 20121024
  Transmission Date: 20130627
  Serious: No
  Sender: FDA-Public Use
  Company Number: US-VERTEX PHARMACEUTICAL INC.-2012-022465

PATIENT
  Age: 59 Year
  Sex: Male
  Weight: 81 kg

DRUGS (9)
  1. VX-950 [Suspect]
     Indication: HEPATITIS C
     Dosage: 750 mg, tid
     Route: 048
  2. PEGASYS [Suspect]
  3. RIBAVIRIN [Suspect]
     Dosage: 200 mg, UNK
  4. FLOMAX                             /00889901/ [Concomitant]
     Dosage: 0.4 mg, UNK
  5. XANAX [Concomitant]
     Dosage: 0.5 mg, UNK
  6. VICODIN [Concomitant]
     Dosage: 555 mg, UNK
  7. TESSALON PERLE [Concomitant]
     Dosage: 100 mg, UNK
  8. BENADRYL                           /00000402/ [Concomitant]
     Dosage: 25 mg, UNK
  9. OINTMENT NO.1 [Concomitant]

REACTIONS (8)
  - Pollakiuria [Unknown]
  - Night sweats [Unknown]
  - Abdominal pain [Unknown]
  - Abdominal distension [Unknown]
  - Skin burning sensation [Unknown]
  - Rash pruritic [Unknown]
  - Diarrhoea [Unknown]
  - Anorectal discomfort [Unknown]
